FAERS Safety Report 4957075-0 (Version None)
Quarter: 2006Q1

REPORT INFORMATION
  Report Type: 
  Country: None (occurrence: None)
  Receive Date: 20060323
  Receipt Date: 20060310
  Transmission Date: 20060701
  Serious: Yes (Other)
  Sender: FDA-Public Use
  Company Number: 2006019367

PATIENT
  Age: 48 Year
  Sex: Male

DRUGS (4)
  1. GEODON [Suspect]
     Indication: SCHIZOAFFECTIVE DISORDER
     Dosage: 120 MG (60 MG, 2 IN 1 D)
  2. ANTI-DIABETICS [Concomitant]
  3. CARDIAC THERAPY [Concomitant]
  4. SEROQUEL (QUETIAPAINE FUMARATE) [Concomitant]

REACTIONS (1)
  - MYOCARDIAL INFARCTION [None]
